FAERS Safety Report 5857292-1 (Version None)
Quarter: 2008Q3

REPORT INFORMATION
  Report Type: 
  Country: None (occurrence: None)
  Receive Date: 20080822
  Receipt Date: 20080813
  Transmission Date: 20090109
  Serious: Yes (Death, Other)
  Sender: FDA-Public Use
  Company Number: GXKR2008US07669

PATIENT
  Age: 26 Year
  Sex: Male

DRUGS (4)
  1. DOXORUBICIN HCL [Suspect]
     Indication: NON-HODGKIN'S LYMPHOMA RECURRENT
     Dosage: , INFUSION
  2. VINCRISTINE [Suspect]
     Indication: NON-HODGKIN'S LYMPHOMA RECURRENT
     Dosage: , INFUSION
  3. PREDNISONE [Suspect]
     Indication: NON-HODGKIN'S LYMPHOMA RECURRENT
     Dosage: , INFUSION
  4. CYCLOPHOSPHAMIDE [Suspect]
     Indication: NON-HODGKIN'S LYMPHOMA RECURRENT
     Dosage: , INFUSION

REACTIONS (12)
  - BRAIN OEDEMA [None]
  - COMA [None]
  - CORNEAL REFLEX DECREASED [None]
  - GAZE PALSY [None]
  - HYPOTONIA [None]
  - LEUKOENCEPHALOPATHY [None]
  - MIOSIS [None]
  - NAUSEA [None]
  - NEUTROPENIA [None]
  - OCULOCEPHALOGYRIC REFLEX ABSENT [None]
  - POSTURING [None]
  - PYREXIA [None]
